FAERS Safety Report 4972885-1 (Version None)
Quarter: 2006Q2

REPORT INFORMATION
  Report Type: 
  Country: None (occurrence: None)
  Receive Date: 20060410
  Receipt Date: 20060327
  Transmission Date: 20061013
  Serious: Yes (Hospitalization)
  Sender: FDA-Public Use
  Company Number: 2006PV010946

PATIENT
  Age: 59 Year
  Sex: Female

DRUGS (6)
  1. BYETTA [Suspect]
     Indication: DIABETES MELLITUS NON-INSULIN-DEPENDENT
     Dosage: 5 MCG; BID;SC
     Route: 058
     Dates: start: 20060301
  2. ATENOLOL [Concomitant]
  3. DIGOXIN [Concomitant]
  4. PROCAINAMIDE [Concomitant]
  5. AMARYL [Concomitant]
  6. AVANDIA [Concomitant]

REACTIONS (3)
  - ATRIAL FIBRILLATION [None]
  - BLOOD GLUCOSE DECREASED [None]
  - CONDITION AGGRAVATED [None]
